FAERS Safety Report 13525679 (Version 2)
Quarter: 2017Q2

REPORT INFORMATION
  Report Type: Spontaneous
  Country: FR (occurrence: FR)
  Receive Date: 20170508
  Receipt Date: 20170616
  Transmission Date: 20170830
  Serious: Yes (Hospitalization)
  Sender: FDA-Public Use
  Company Number: FR-ROCHE-1930422

PATIENT
  Age: 60 Year
  Sex: Female

DRUGS (25)
  1. NEORAL [Concomitant]
     Active Substance: CYCLOSPORINE
     Route: 065
     Dates: start: 20170316
  2. THYMOGLOBULIN [Concomitant]
     Active Substance: LAPINE T-LYMPHOCYTE IMMUNE GLOBULIN
     Dosage: D20 TO D28
     Route: 065
     Dates: start: 20170209, end: 20170217
  3. NEORAL [Concomitant]
     Active Substance: CYCLOSPORINE
     Dosage: D1 TO D20
     Route: 065
     Dates: start: 20170121, end: 20170209
  4. CORTANCYL [Concomitant]
     Active Substance: PREDNISONE
     Route: 065
     Dates: start: 20170127
  5. CORTANCYL [Concomitant]
     Active Substance: PREDNISONE
     Route: 065
     Dates: start: 20170206
  6. DIFFU-K [Concomitant]
     Active Substance: POTASSIUM CHLORIDE
     Route: 065
     Dates: start: 20170126
  7. PHOSPHONEUROS [Concomitant]
     Active Substance: CALCIUM PHOSPHATE, DIBASIC, ANHYDROUS\MAGNESIUM GLYCEROPHOSPHATE\PHOSPHORIC ACID\SODIUM PHOSPHATE, DIBASIC
     Dosage: DOSE: 50 DROPS
     Route: 065
     Dates: start: 20170215
  8. EPREX [Concomitant]
     Active Substance: ERYTHROPOIETIN
     Route: 065
     Dates: start: 20170131
  9. CERTICAN [Suspect]
     Active Substance: EVEROLIMUS
     Indication: PROPHYLAXIS AGAINST TRANSPLANT REJECTION
     Route: 048
     Dates: start: 20170214, end: 20170221
  10. CERTICAN [Suspect]
     Active Substance: EVEROLIMUS
     Route: 048
     Dates: start: 20170222, end: 20170316
  11. MYFORTIC [Suspect]
     Active Substance: MYCOPHENOLATE SODIUM
     Route: 048
     Dates: start: 20170209, end: 20170219
  12. CORTANCYL [Concomitant]
     Active Substance: PREDNISONE
     Dosage: D1
     Route: 065
     Dates: start: 20170121
  13. BACTRIM [Suspect]
     Active Substance: SULFAMETHOXAZOLE\TRIMETHOPRIM
     Indication: PROPHYLAXIS
     Route: 048
     Dates: start: 20170124, end: 20170327
  14. MYFORTIC [Suspect]
     Active Substance: MYCOPHENOLATE SODIUM
     Route: 048
     Dates: start: 20170220, end: 20170328
  15. MAG [Concomitant]
     Dosage: 2: 1 X 2 TIMES/DAY
     Route: 065
     Dates: start: 20170126
  16. SIMULECT [Concomitant]
     Active Substance: BASILIXIMAB
     Dosage: D1 TO D4
     Route: 065
     Dates: start: 20170121, end: 20170124
  17. PARACETAMOL [Concomitant]
     Active Substance: ACETAMINOPHEN
  18. ARANESP [Concomitant]
     Active Substance: DARBEPOETIN ALFA
  19. INEXIUM [Suspect]
     Active Substance: ESOMEPRAZOLE
     Indication: PROPHYLAXIS AGAINST GASTROINTESTINAL ULCER
     Route: 048
     Dates: start: 20170121, end: 20170322
  20. SODIUM BICARBONATE. [Concomitant]
     Active Substance: SODIUM BICARBONATE
     Route: 065
     Dates: start: 20170209
  21. TAHOR [Suspect]
     Active Substance: ATORVASTATIN CALCIUM
     Indication: CARDIOVASCULAR EVENT PROPHYLAXIS
     Dosage: ONGOING
     Route: 048
     Dates: start: 20170124
  22. LASILIX [Suspect]
     Active Substance: FUROSEMIDE
     Indication: RENAL TRANSPLANT
     Dosage: ONGOING
     Route: 048
     Dates: start: 20170124
  23. MYFORTIC [Suspect]
     Active Substance: MYCOPHENOLATE SODIUM
     Route: 048
     Dates: start: 20170322
  24. ROVALCYTE [Suspect]
     Active Substance: VALGANCICLOVIR HYDROCHLORIDE
     Indication: PROPHYLAXIS
     Route: 048
     Dates: start: 20170124, end: 20170327
  25. MYFORTIC [Suspect]
     Active Substance: MYCOPHENOLATE SODIUM
     Indication: PROPHYLAXIS AGAINST TRANSPLANT REJECTION
     Dosage: D1
     Route: 048
     Dates: start: 20170121, end: 20170208

REACTIONS (1)
  - Renal lymphocele [Recovered/Resolved with Sequelae]

NARRATIVE: CASE EVENT DATE: 20170224
